FAERS Safety Report 5771363-X (Version None)
Quarter: 2008Q2

REPORT INFORMATION
  Report Type: 
  Country: None (occurrence: None)
  Receive Date: 20080613
  Receipt Date: 20080602
  Transmission Date: 20081010
  Serious: Yes (Hospitalization)
  Sender: FDA-Public Use
  Company Number: US-JNJFOC-20080404594

PATIENT
  Sex: Female
  Weight: 95.26 kg

DRUGS (2)
  1. ORTHO EVRA [Suspect]
     Indication: CONTRACEPTION
     Route: 062
  2. LEXAPRO [Concomitant]

REACTIONS (2)
  - MESENTERIC VEIN THROMBOSIS [None]
  - SMALL INTESTINAL RESECTION [None]
